FAERS Safety Report 19899401 (Version 2)
Quarter: 2021Q4

REPORT INFORMATION
  Report Type: Report from Study
  Country: BE (occurrence: BE)
  Receive Date: 20210929
  Receipt Date: 20211129
  Transmission Date: 20220303
  Serious: Yes (Hospitalization)
  Sender: FDA-Public Use
  Company Number: BE-ROCHE-2825752

PATIENT
  Age: 51 Year
  Sex: Male
  Weight: 96.1 kg

DRUGS (16)
  1. DEXAMETHASONE [Suspect]
     Active Substance: DEXAMETHASONE
     Indication: B-cell lymphoma
     Dosage: 40 MILLIGRAM, QD
     Route: 065
     Dates: start: 20210406
  2. CYTARABINE [Suspect]
     Active Substance: CYTARABINE
     Indication: B-cell lymphoma
     Dosage: 2000 MILLIGRAM (LATEST DOSE ADMINISTERED ON 07/APR/2021)
     Route: 042
     Dates: start: 20210407
  3. CYTARABINE [Suspect]
     Active Substance: CYTARABINE
     Dosage: 2000 MILLIGRAM, Q3W
     Route: 042
     Dates: start: 20210406, end: 20210406
  4. RITUXIMAB [Suspect]
     Active Substance: RITUXIMAB
     Indication: B-cell lymphoma
     Dosage: 832.5 MILLIGRAM (DATE OF LAST DOSE PRIOR TO EVENT: 06/APR/2021)
     Route: 041
     Dates: start: 20210406
  5. SODIUM PHOSPHATE [Suspect]
     Active Substance: SODIUM PHOSPHATE
     Indication: Lymphoma
     Dosage: UNK
     Route: 042
     Dates: start: 20210406
  6. CARBOPLATIN [Suspect]
     Active Substance: CARBOPLATIN
     Indication: Diffuse large B-cell lymphoma
     Dosage: 861.9 MILLIGRAM, Q3W
     Route: 042
     Dates: start: 20210406
  7. ACETAMINOPHEN [Concomitant]
     Active Substance: ACETAMINOPHEN
     Indication: Premedication
     Dosage: 1 GRAM
     Route: 048
     Dates: start: 20210412, end: 20210412
  8. ACETAMINOPHEN [Concomitant]
     Active Substance: ACETAMINOPHEN
     Dosage: UNK
     Route: 048
     Dates: start: 20210328, end: 20210328
  9. CLEMASTINE FUMARATE [Concomitant]
     Active Substance: CLEMASTINE FUMARATE
     Indication: Premedication
     Dosage: 2 MILLIGRAM
     Route: 042
     Dates: start: 20210412, end: 20210412
  10. OMEPRAZOLE [Concomitant]
     Active Substance: OMEPRAZOLE
     Dosage: UNK
     Dates: start: 20210329, end: 20210824
  11. EUSAPRIM                           /00086101/ [Concomitant]
     Dosage: UNK
     Dates: start: 202012, end: 20210824
  12. DICLOFENAC [Concomitant]
     Active Substance: DICLOFENAC
     Dosage: UNK
     Dates: start: 20210328, end: 20210328
  13. ZOFRAN                             /00955301/ [Concomitant]
     Dosage: UNK
     Dates: start: 20210409, end: 20210505
  14. ZOFRAN                             /00955301/ [Concomitant]
     Dosage: UNK
     Dates: start: 20210406, end: 20210820
  15. FLUCONAZOLE [Concomitant]
     Active Substance: FLUCONAZOLE
     Dosage: UNK
     Dates: start: 20210406, end: 20210803
  16. SOLU-MEDROL [Concomitant]
     Active Substance: METHYLPREDNISOLONE SODIUM SUCCINATE
     Dosage: UNK
     Dates: start: 20210412, end: 20210427

REACTIONS (1)
  - Thrombocytopenia [Recovered/Resolved]

NARRATIVE: CASE EVENT DATE: 20210419
